FAERS Safety Report 12109120 (Version 11)
Quarter: 2017Q1

REPORT INFORMATION
  Report Type: Spontaneous
  Country: US (occurrence: US)
  Receive Date: 20160224
  Receipt Date: 20170313
  Transmission Date: 20170428
  Serious: Yes (Life-Threatening, Congenital Anomaly, Other)
  Sender: FDA-Public Use
  Company Number: PHEH2016US004331

PATIENT
  Sex: Female

DRUGS (2)
  1. ZOFRAN [Suspect]
     Active Substance: ONDANSETRON HYDROCHLORIDE
     Indication: FOETAL EXPOSURE DURING PREGNANCY
     Dosage: MOTHER^S DOSE: 8 MG,QD
     Route: 064
  2. ZOFRAN [Suspect]
     Active Substance: ONDANSETRON HYDROCHLORIDE
     Indication: FOETAL EXPOSURE DURING PREGNANCY
     Dosage: MOTHERS DOSE: 4 MG, PRN
     Route: 064

REACTIONS (34)
  - Transposition of the great vessels [Unknown]
  - Polycythaemia [Unknown]
  - Developmental delay [Unknown]
  - Anhedonia [Unknown]
  - Upper respiratory tract infection [Unknown]
  - Pulmonary oedema [Unknown]
  - Pleural effusion [Unknown]
  - Injury [Unknown]
  - Atrial septal defect [Unknown]
  - Hypoplastic left heart syndrome [Unknown]
  - Heart valve incompetence [Unknown]
  - Sinus node dysfunction [Unknown]
  - Eustachian tube dysfunction [Unknown]
  - Congenital anomaly [Unknown]
  - Heart disease congenital [Unknown]
  - Cyanosis [Unknown]
  - Ear pain [Unknown]
  - Dyspnoea [Unknown]
  - Pulmonary artery stenosis congenital [Unknown]
  - Heart block congenital [Unknown]
  - Foetal exposure during pregnancy [Unknown]
  - Respiratory depression [Unknown]
  - Hypoxia [Unknown]
  - Bradycardia [Unknown]
  - Emotional distress [Unknown]
  - Otitis media [Unknown]
  - Patent ductus arteriosus [Unknown]
  - Lactic acidosis [Unknown]
  - Pain [Unknown]
  - Cardiac murmur [Unknown]
  - Univentricular heart [Unknown]
  - Cardiac ventricular disorder [Unknown]
  - Feeding disorder [Unknown]
  - Anxiety [Unknown]
